FAERS Safety Report 12761572 (Version 3)
Quarter: 2016Q4

REPORT INFORMATION
  Report Type: Report from Study
  Country: DE (occurrence: DE)
  Receive Date: 20160920
  Receipt Date: 20161021
  Transmission Date: 20170207
  Serious: Yes (Hospitalization)
  Sender: FDA-Public Use
  Company Number: PHHY2016DE127760

PATIENT
  Sex: Male
  Weight: 97 kg

DRUGS (7)
  1. FUCICORT [Concomitant]
     Active Substance: BETAMETHASONE VALERATE\FUSIDIC ACID
     Indication: OTITIS EXTERNA
     Dosage: UNK UNK, PRN
     Route: 061
     Dates: start: 20160616, end: 20160712
  2. COSENTYX [Suspect]
     Active Substance: SECUKINUMAB
     Dosage: 300 MG, PER APPLICATION
     Route: 065
     Dates: start: 20160712
  3. ANTIBI-OTIC EAR DROPS [Concomitant]
     Indication: OTITIS EXTERNA
     Dosage: UNK UNK, BID
     Route: 050
     Dates: start: 20160706
  4. COSENTYX [Suspect]
     Active Substance: SECUKINUMAB
     Indication: PSORIASIS
     Dosage: 300 MG, PER APPLICATION
     Route: 065
     Dates: start: 20160518
  5. COSENTYX [Suspect]
     Active Substance: SECUKINUMAB
     Dosage: 300 MG, PER APPLICATION
     Route: 065
     Dates: start: 20160616
  6. COSENTYX [Suspect]
     Active Substance: SECUKINUMAB
     Dosage: 300 MG, PER APPLICATION
     Route: 065
     Dates: start: 20160813
  7. COSENTYX [Suspect]
     Active Substance: SECUKINUMAB
     Dosage: 300 MG, PER APPLICATION
     Route: 065
     Dates: start: 20160908

REACTIONS (1)
  - Dyshidrotic eczema [Not Recovered/Not Resolved]

NARRATIVE: CASE EVENT DATE: 20160907
